FAERS Safety Report 8789848 (Version 2)
Quarter: 2012Q4

REPORT INFORMATION
  Report Type: 
  Country: US (occurrence: US)
  Receive Date: 20120917
  Receipt Date: 20121008
  Transmission Date: 20130627
  Serious: Yes (Hospitalization)
  Sender: FDA-Public Use
  Company Number: US-B.I. PHARMACEUTICALS,INC./RIDGEFIELD-2012-BP-22418BP

PATIENT
  Age: 82 Year
  Sex: Male

DRUGS (7)
  1. PRADAXA [Suspect]
     Indication: CEREBROVASCULAR ACCIDENT
     Dosage: 300 mg
     Route: 048
     Dates: start: 2011
  2. PRADAXA [Suspect]
     Indication: ATRIAL FIBRILLATION
  3. LASIX [Concomitant]
     Dosage: 20 mg
     Route: 048
  4. LUNESTA [Concomitant]
     Indication: SLEEP DISORDER
  5. DIGOXIN [Concomitant]
     Dosage: 0.125 mg
     Route: 048
  6. SPIRONOLACTONE [Concomitant]
     Dosage: 25 mg
     Route: 048
  7. COREG CR [Concomitant]
     Dosage: 40 mg
     Route: 048

REACTIONS (1)
  - Thrombosis [Recovered/Resolved]
